FAERS Safety Report 7522227-2 (Version None)
Quarter: 2011Q2

REPORT INFORMATION
  Report Type: 
  Country: None (occurrence: None)
  Receive Date: 20110603
  Receipt Date: 20110530
  Transmission Date: 20111010
  Serious: Yes (Other)
  Sender: FDA-Public Use
  Company Number: CN-PFIZER INC-2011109721

PATIENT
  Age: 57 Year
  Sex: Male

DRUGS (1)
  1. EPIRUBICIN [Suspect]
     Indication: BLADDER CANCER
     Dosage: 30 MG, 1X/DAY PERFUSION

REACTIONS (3)
  - PALPITATIONS [None]
  - TACHYPNOEA [None]
  - FLUSHING [None]
